FAERS Safety Report 5929934-3 (Version None)
Quarter: 2008Q4

REPORT INFORMATION
  Report Type: 
  Country: None (occurrence: None)
  Receive Date: 20081021
  Receipt Date: 20081013
  Transmission Date: 20090506
  Serious: Yes (Hospitalization)
  Sender: FDA-Public Use
  Company Number: 2008BI027323

PATIENT
  Sex: Female

DRUGS (3)
  1. AVONEX [Suspect]
     Indication: MULTIPLE SCLEROSIS
     Dosage: IM, 30 UG;QW;IM
     Route: 030
     Dates: start: 19990721, end: 20051216
  2. . [Concomitant]
  3. . [Concomitant]

REACTIONS (2)
  - BENIGN NEOPLASM OF THYROID GLAND [None]
  - MYOCARDIAL INFARCTION [None]
